FAERS Safety Report 5294408-2 (Version None)
Quarter: 2007Q2

REPORT INFORMATION
  Report Type: 
  Country: None (occurrence: None)
  Receive Date: 20070412
  Receipt Date: 20070330
  Transmission Date: 20071010
  Serious: Yes (Other)
  Sender: FDA-Public Use
  Company Number: PHEH2005US11644

PATIENT
  Age: 51 Year
  Sex: Female

DRUGS (2)
  1. ESTRADERM [Suspect]
     Indication: HORMONE REPLACEMENT THERAPY
     Dates: start: 19940101
  2. ESTRADERM [Suspect]
     Dosage: 0.05 MG/DAY TWICE WEEKLY
     Route: 062

REACTIONS (11)
  - BLADDER SPASM [None]
  - BLOOD GLUCOSE INCREASED [None]
  - CARBOHYDRATE TOLERANCE DECREASED [None]
  - DIABETES MELLITUS [None]
  - DIZZINESS [None]
  - FLUSHING [None]
  - GLUCOSE TOLERANCE IMPAIRED [None]
  - HYPERHIDROSIS [None]
  - HYPERTONIC BLADDER [None]
  - VAGINAL BURNING SENSATION [None]
  - VULVOVAGINAL DISCOMFORT [None]
